FAERS Safety Report 6415659-7 (Version None)
Quarter: 2009Q4

REPORT INFORMATION
  Report Type: 
  Country: None (occurrence: None)
  Receive Date: 20091027
  Receipt Date: 20091021
  Transmission Date: 20100525
  Serious: Yes (Hospitalization)
  Sender: FDA-Public Use
  Company Number: DE-ROCHE-663966

PATIENT
  Sex: Female
  Weight: 53 kg

DRUGS (2)
  1. CAPECITABINE [Suspect]
     Indication: BREAST CANCER
     Dosage: THERAPY TEMPORARILY INTERRUPTED;  AS PER PROTOCOL: ROUTE- ORAL, DOSE: 1000 MG/M^2 TWICE DAILY
     Route: 048
  2. BEVACIZUMAB [Suspect]
     Indication: BREAST CANCER
     Dosage: THERAPY TEMPORARILY INTERRUPTED; AS PER PROTOCOL: ROUTE- INTRAVENOUS, DOSE: 15 MG/KG, FREQ.: DAY 1
     Route: 042

REACTIONS (1)
  - CHOLECYSTITIS [None]
